FAERS Safety Report 19474648 (Version 1)
Quarter: 2021Q2

REPORT INFORMATION
  Report Type: Report from Study
  Country: US (occurrence: US)
  Receive Date: 20210629
  Receipt Date: 20210629
  Transmission Date: 20210717
  Serious: Yes (Hospitalization)
  Sender: FDA-Public Use
  Company Number: US-BAUSCH-BL-2021-000014

PATIENT
  Age: 66 Year
  Sex: Female

DRUGS (2)
  1. XIFAXAN [Suspect]
     Active Substance: RIFAXIMIN
     Indication: HEPATIC ENCEPHALOPATHY
     Route: 048
     Dates: end: 202010
  2. XIFAXAN [Suspect]
     Active Substance: RIFAXIMIN
     Dosage: RE?STARTED
     Route: 048
     Dates: start: 2020

REACTIONS (3)
  - Therapy interrupted [Unknown]
  - Product availability issue [Unknown]
  - Unresponsive to stimuli [Recovered/Resolved]

NARRATIVE: CASE EVENT DATE: 202010
